FAERS Safety Report 5068208-2 (Version None)
Quarter: 2006Q3

REPORT INFORMATION
  Report Type: 
  Country: None (occurrence: None)
  Receive Date: 20060802
  Receipt Date: 20050603
  Transmission Date: 20061208
  Serious: No
  Sender: FDA-Public Use
  Company Number: US-BRISTOL-MYERS SQUIBB COMPANY-12993044

PATIENT
  Age: 68 Year
  Sex: Female
  Weight: 85 kg

DRUGS (8)
  1. COUMADIN [Suspect]
     Indication: ATRIAL FIBRILLATION
     Dates: start: 20050307, end: 20050501
  2. ALTACE [Concomitant]
  3. EVISTA [Concomitant]
  4. LASIX [Concomitant]
  5. LANOXIN [Concomitant]
  6. LEVOTHYROXINE SODIUM [Concomitant]
  7. LIPITOR [Concomitant]
  8. SPIRONOLACTONE [Concomitant]

REACTIONS (1)
  - ARTHRALGIA [None]
